FAERS Safety Report 16913744 (Version 1)
Quarter: 2019Q4

REPORT INFORMATION
  Report Type: Spontaneous
  Country: US (occurrence: US)
  Receive Date: 20191014
  Receipt Date: 20191014
  Transmission Date: 20200122
  Serious: No
  Sender: FDA-Public Use
  Company Number: US-MTPC-MTDA2019-0072841

PATIENT

DRUGS (2)
  1. RADICAVA [Suspect]
     Active Substance: EDARAVONE
     Dosage: 60 MILLIGRAM OVER 60 MINUTES,QD FOR 10 DAYS IN A 14-DAY PERIOD FOLLOWED BY A 2-WEEK DRUG FREE PERIOD
     Route: 042
  2. RADICAVA [Suspect]
     Active Substance: EDARAVONE
     Indication: AMYOTROPHIC LATERAL SCLEROSIS
     Dosage: 60 MILLIGRAM OVER 60 MINUTES, QD FOR 14 CONSECUTIVE DAYS FOLLOWED BY A 2-WEEK DRUG FREE PERIOD
     Route: 042
     Dates: start: 20171005

REACTIONS (1)
  - Therapeutic response unexpected [Unknown]
